FAERS Safety Report 19104956 (Version 3)
Quarter: 2021Q2

REPORT INFORMATION
  Report Type: Report from Study
  Country: BR (occurrence: BR)
  Receive Date: 20210407
  Receipt Date: 20210628
  Transmission Date: 20210717
  Serious: Yes (Life-Threatening, Hospitalization, Disabling, Other)
  Sender: FDA-Public Use
  Company Number: BR-TAKEDA-BR202026859

PATIENT
  Age: 27 Year
  Sex: Male
  Weight: 70 kg

DRUGS (7)
  1. HEMO?8R [Suspect]
     Active Substance: ANTIHEMOPHILIC FACTOR, HUMAN RECOMBINANT
     Dosage: 2000 INTERNATIONAL UNIT
     Route: 042
     Dates: start: 20150414
  2. HEMO?8R [Suspect]
     Active Substance: ANTIHEMOPHILIC FACTOR, HUMAN RECOMBINANT
     Dosage: 1000 INTERNATIONAL UNIT, 2/WEEK
     Route: 042
  3. HEMO?8R [Suspect]
     Active Substance: ANTIHEMOPHILIC FACTOR, HUMAN RECOMBINANT
     Dosage: 2000 INTERNATIONAL UNIT, PRN
     Route: 042
  4. NEOZINE [Concomitant]
     Active Substance: LEVOMEPROMAZINE
     Indication: SLEEP DISORDER
     Dosage: UNK
     Route: 065
  5. DIPYRONE [Concomitant]
     Active Substance: DIPYRONE
     Indication: ARTHRALGIA
     Dosage: UNK
     Route: 065
  6. HEMO?8R [Suspect]
     Active Substance: ANTIHEMOPHILIC FACTOR, HUMAN RECOMBINANT
     Indication: FACTOR VIII DEFICIENCY
     Dosage: 2000 INTERNATIONAL UNIT
     Route: 042
  7. NOVALGINA [Concomitant]
     Active Substance: METAMIZOLE SODIUM
     Indication: ARTHRALGIA
     Dosage: UNK
     Route: 065

REACTIONS (16)
  - Condition aggravated [Recovering/Resolving]
  - Gait disturbance [Not Recovered/Not Resolved]
  - Gun shot wound [Unknown]
  - Nervousness [Unknown]
  - Pain in extremity [Recovering/Resolving]
  - Neck pain [Not Recovered/Not Resolved]
  - Atrophy [Recovered/Resolved]
  - Burning sensation [Unknown]
  - Intentional self-injury [Recovered/Resolved]
  - Pain [Unknown]
  - Femur fracture [Unknown]
  - Paralysis [Unknown]
  - Inappropriate schedule of product administration [Unknown]
  - Mental disorder [Unknown]
  - Haemoglobin abnormal [Recovered/Resolved]
  - Arthralgia [Recovering/Resolving]

NARRATIVE: CASE EVENT DATE: 2015
